FAERS Safety Report 8096468-2 (Version None)
Quarter: 2012Q1

REPORT INFORMATION
  Report Type: 
  Country: None (occurrence: None)
  Receive Date: 20120129
  Receipt Date: 20111207
  Transmission Date: 20120608
  Serious: No
  Sender: FDA-Public Use
  Company Number: US-ABBOTT-11P-163-0883120-00

PATIENT
  Sex: Female
  Weight: 90.8 kg

DRUGS (4)
  1. HUMIRA [Suspect]
     Indication: CROHN'S DISEASE
     Route: 058
     Dates: start: 20100920, end: 20110301
  2. UNKNOWN ANTI-DIARRHEAL OTC MEDICATION [Concomitant]
     Indication: DIARRHOEA
  3. PENTASA [Concomitant]
     Indication: CROHN'S DISEASE
     Dates: start: 20101201, end: 20110301
  4. HUMIRA [Suspect]
     Route: 058
     Dates: start: 20110601

REACTIONS (4)
  - OROPHARYNGEAL PAIN [None]
  - INCISION SITE INFECTION [None]
  - MIGRAINE [None]
  - APHONIA [None]
